FAERS Safety Report 5144118-7 (Version None)
Quarter: 2006Q4

REPORT INFORMATION
  Report Type: 
  Country: None (occurrence: None)
  Receive Date: 20061106
  Receipt Date: 20060829
  Transmission Date: 20070319
  Serious: No
  Sender: FDA-Public Use
  Company Number: US-GLAXOSMITHKLINE-A0618496A

PATIENT
  Age: 9 Year
  Sex: Female

DRUGS (2)
  1. AMOXIL [Suspect]
     Indication: DRUG USE FOR UNKNOWN INDICATION
     Route: 048
     Dates: start: 20060829
  2. NO CONCURRENT MEDICATION [Concomitant]

REACTIONS (1)
  - MEDICATION ERROR [None]
